FAERS Safety Report 6391261-0 (Version None)
Quarter: 2009Q4

REPORT INFORMATION
  Report Type: 
  Country: None (occurrence: None)
  Receive Date: 20091006
  Receipt Date: 20091006
  Transmission Date: 20100525
  Serious: Yes (Hospitalization)
  Sender: FDA-Public Use
  Company Number: None

PATIENT
  Age: 21 Year
  Sex: Female
  Weight: 56.6996 kg

DRUGS (1)
  1. LEXAPRO [Suspect]
     Indication: ANXIETY
     Dosage: 10 MG DAILY PO
     Route: 048
     Dates: start: 20090920, end: 20090921

REACTIONS (6)
  - CHILLS [None]
  - MUSCLE SPASMS [None]
  - RESTLESSNESS [None]
  - SEROTONIN SYNDROME [None]
  - VOMITING [None]
  - YAWNING [None]
